FAERS Safety Report 9403422 (Version 2)
Quarter: 2013Q3

REPORT INFORMATION
  Report Type: Report from Study
  Country: AR (occurrence: AR)
  Receive Date: 20130716
  Receipt Date: 20130726
  Transmission Date: 20140515
  Serious: Yes (Hospitalization)
  Sender: FDA-Public Use
  Company Number: AR-ABBOTT-13P-007-1112654-00

PATIENT
  Age: 27 Year
  Sex: Female
  Weight: 73 kg

DRUGS (4)
  1. HUMIRA [Suspect]
     Indication: CROHN^S DISEASE
     Dosage: 4 AMPULES
     Route: 058
     Dates: start: 20130611, end: 20130625
  2. GAMMA GLOBULIN [Suspect]
     Indication: IMMUNE THROMBOCYTOPENIC PURPURA
  3. OMEPRAZOLE [Concomitant]
     Indication: PRODUCT USED FOR UNKNOWN INDICATION
  4. CORTICOIDS [Concomitant]
     Indication: PRODUCT USED FOR UNKNOWN INDICATION

REACTIONS (5)
  - Pyrexia [Recovered/Resolved]
  - Vomiting [Recovered/Resolved]
  - Splenectomy [Recovered/Resolved]
  - Gastrointestinal oedema [Unknown]
  - Crohn^s disease [Unknown]
